FAERS Safety Report 18794834 (Version 1)
Quarter: 2021Q1

REPORT INFORMATION
  Report Type: Spontaneous
  Country: US (occurrence: US)
  Receive Date: 20210127
  Receipt Date: 20210127
  Transmission Date: 20210419
  Serious: Yes (Other)
  Sender: FDA-Public Use
  Company Number: US-HIKMA PHARMACEUTICALS USA INC.-US-H14001-21-00324

PATIENT
  Age: 20 Year
  Sex: Male

DRUGS (1)
  1. METHAMPHETAMINE [Suspect]
     Active Substance: METHAMPHETAMINE
     Indication: PRODUCT USED FOR UNKNOWN INDICATION
     Route: 048

REACTIONS (6)
  - Palpitations [Unknown]
  - Hypertension [Unknown]
  - Multiple organ dysfunction syndrome [Unknown]
  - Tachycardia [Unknown]
  - Hyperthermia [Unknown]
  - Acute hepatic failure [Unknown]
